FAERS Safety Report 9294849 (Version 4)
Quarter: 2013Q4

REPORT INFORMATION
  Report Type: Spontaneous
  Country: FR (occurrence: FR)
  Receive Date: 20130517
  Receipt Date: 20131023
  Transmission Date: 20140711
  Serious: Yes (Death, Other)
  Sender: FDA-Public Use
  Company Number: FR-VERTEX PHARMACEUTICALS INC-2013-006095

PATIENT
  Sex: 0

DRUGS (8)
  1. INCIVO [Suspect]
     Indication: HEPATITIS C
     Dosage: 750 MG, TID
     Route: 065
  2. INCIVO [Suspect]
     Route: 065
  3. INCIVO [Suspect]
     Route: 065
  4. PEGINTERFERON ALFA 2A [Suspect]
     Indication: HEPATITIS C
     Dosage: 180 ?G, QW
     Route: 065
  5. PEGINTERFERON ALFA 2A [Suspect]
     Dosage: UNK
  6. RIBAVIRIN [Suspect]
     Indication: HEPATITIS C
     Dosage: UNK, QD
     Route: 065
  7. RIBAVIRIN [Suspect]
     Dosage: DOSAGE FORM: UNSPECIFIED, 1000 TO 1200 MG/DAY
  8. RIBAVIRIN [Suspect]
     Dosage: DOSAGE FORM: UNSPECIFIED, 1000 TO 1200 MG/DAY

REACTIONS (11)
  - Sepsis [Fatal]
  - Haemorrhage [Fatal]
  - Encephalopathy [Fatal]
  - Lung neoplasm malignant [Fatal]
  - Pneumonia [Fatal]
  - Infection [Unknown]
  - Liver disorder [Unknown]
  - Rash [Unknown]
  - Anaemia [Unknown]
  - Treatment failure [Unknown]
  - Drug eruption [Unknown]
